FAERS Safety Report 9346309 (Version 2)
Quarter: 2013Q2

REPORT INFORMATION
  Report Type: Spontaneous
  Country: JP (occurrence: JP)
  Receive Date: 20130613
  Receipt Date: 20130619
  Transmission Date: 20140414
  Serious: Yes (Hospitalization)
  Sender: FDA-Public Use
  Company Number: JP-ELI_LILLY_AND_COMPANY-JP201306002829

PATIENT
  Age: 55 Year
  Sex: Female
  Weight: 40 kg

DRUGS (3)
  1. CYMBALTA [Suspect]
     Indication: DIABETIC NEUROPATHY
     Dosage: 20 MG, QD
     Route: 048
     Dates: start: 20121112, end: 201301
  2. CYMBALTA [Suspect]
     Dosage: 40 MG, QD
     Route: 048
     Dates: start: 201301, end: 20130604
  3. CYMBALTA [Suspect]
     Dosage: 20 MG, QD
     Route: 048
     Dates: start: 20130605, end: 20130608

REACTIONS (3)
  - Renal disorder [Not Recovered/Not Resolved]
  - Decreased appetite [Recovered/Resolved]
  - Nausea [Recovered/Resolved]
